FAERS Safety Report 4905844-5 (Version None)
Quarter: 2006Q1

REPORT INFORMATION
  Report Type: 
  Country: None (occurrence: None)
  Receive Date: 20060113
  Receipt Date: 20050919
  Transmission Date: 20060701
  Serious: No
  Sender: FDA-Public Use
  Company Number: 2005SP002754

PATIENT
  Age: 80 Year
  Sex: Male
  Weight: 68.0396 kg

DRUGS (5)
  1. LUNESTA [Suspect]
     Indication: SLEEP APNOEA SYNDROME
     Dosage: 2 MG;HS
     Dates: start: 20050710, end: 20050905
  2. BETAPACE [Concomitant]
  3. SIMVASTATIN [Concomitant]
  4. CELEXA [Concomitant]
  5. AMLODIPINE [Concomitant]

REACTIONS (2)
  - COUGH [None]
  - DRY THROAT [None]
